FAERS Safety Report 7015142-4 (Version None)
Quarter: 2010Q3

REPORT INFORMATION
  Report Type: 
  Country: None (occurrence: None)
  Receive Date: 20100927
  Receipt Date: 20090910
  Transmission Date: 20110219
  Serious: No
  Sender: FDA-Public Use
  Company Number: US-ASTRAZENECA-2009SE12552

PATIENT
  Age: 58 Year
  Sex: Female
  Weight: 63.5 kg

DRUGS (4)
  1. ARIMIDEX [Suspect]
     Route: 048
     Dates: start: 20070801
  2. LEVOTHYROXINE SODIUM [Concomitant]
  3. ALENDRONATE SODIUM [Concomitant]
  4. CALCIUM SUPPLEMENTS [Concomitant]

REACTIONS (5)
  - DIPLOPIA [None]
  - EYE MOVEMENT DISORDER [None]
  - HEAD DISCOMFORT [None]
  - HYPOAESTHESIA [None]
  - NAUSEA [None]
